FAERS Safety Report 5246782-0 (Version None)
Quarter: 2007Q1

REPORT INFORMATION
  Report Type: 
  Country: None (occurrence: None)
  Receive Date: 20070226
  Receipt Date: 20070215
  Transmission Date: 20070707
  Serious: Yes (Life-Threatening, Hospitalization, Other)
  Sender: FDA-Public Use
  Company Number: DE-BRISTOL-MYERS SQUIBB COMPANY-13467279

PATIENT
  Age: 48 Year
  Sex: Female
  Weight: 54 kg

DRUGS (8)
  1. PACLITAXEL [Suspect]
     Indication: BREAST CANCER
     Route: 042
     Dates: start: 20051024, end: 20051128
  2. CYCLOPHOSPHAMIDE [Suspect]
     Indication: BREAST CANCER
     Route: 042
     Dates: start: 20051212, end: 20060109
  3. EPIRUBICIN [Suspect]
     Indication: BREAST CANCER
     Route: 042
     Dates: start: 20050829, end: 20051010
  4. EPOGEN [Concomitant]
     Route: 058
     Dates: start: 20050823, end: 20060109
  5. GRANISETRON [Concomitant]
     Route: 048
     Dates: start: 20050829, end: 20060109
  6. GRANISETRON [Concomitant]
     Route: 042
     Dates: start: 20050828, end: 20060109
  7. GRANULOCYTE CSF [Concomitant]
     Route: 058
     Dates: start: 20050829, end: 20060109
  8. DEXAMETHASONE [Concomitant]
     Route: 042
     Dates: start: 20050829, end: 20060109

REACTIONS (1)
  - MALIGNANT MELANOMA [None]
